FAERS Safety Report 15767522 (Version 1)
Quarter: 2018Q4

REPORT INFORMATION
  Report Type: Spontaneous
  Country: HU (occurrence: HU)
  Receive Date: 20181227
  Receipt Date: 20181227
  Transmission Date: 20190205
  Serious: Yes (Other)
  Sender: FDA-Public Use
  Company Number: HU-PFM-2018-14958

PATIENT

DRUGS (11)
  1. VINORELBINE [Suspect]
     Active Substance: VINORELBINE\VINORELBINE TARTRATE
     Indication: BREAST CANCER METASTATIC
     Dosage: UNK
     Route: 065
  2. EVEROLIMUS. [Suspect]
     Active Substance: EVEROLIMUS
     Indication: INVASIVE LOBULAR BREAST CARCINOMA
  3. EVEROLIMUS. [Suspect]
     Active Substance: EVEROLIMUS
     Indication: OESTROGEN RECEPTOR POSITIVE BREAST CANCER
     Dosage: UNK
     Route: 065
     Dates: start: 201710
  4. EVEROLIMUS. [Suspect]
     Active Substance: EVEROLIMUS
     Indication: METASTASES TO SKIN
  5. LETROZOLE. [Suspect]
     Active Substance: LETROZOLE
     Indication: OESTROGEN RECEPTOR POSITIVE BREAST CANCER
     Dosage: UNK
     Route: 065
     Dates: start: 2013
  6. EXEMESTANE. [Suspect]
     Active Substance: EXEMESTANE
     Indication: CELLULITIS
     Route: 065
  7. EXEMESTANE. [Suspect]
     Active Substance: EXEMESTANE
     Indication: METASTASES TO SKIN
  8. EXEMESTANE. [Suspect]
     Active Substance: EXEMESTANE
     Indication: PERIORBITAL CELLULITIS
  9. EXEMESTANE. [Suspect]
     Active Substance: EXEMESTANE
     Indication: MALIGNANT NEOPLASM PROGRESSION
  10. EVEROLIMUS. [Suspect]
     Active Substance: EVEROLIMUS
     Indication: MALIGNANT NEOPLASM PROGRESSION
  11. LETROZOLE. [Suspect]
     Active Substance: LETROZOLE
     Indication: INVASIVE LOBULAR BREAST CARCINOMA

REACTIONS (5)
  - Eyelid oedema [Recovering/Resolving]
  - Abdominal lymphadenopathy [Recovering/Resolving]
  - Periorbital cellulitis [Recovering/Resolving]
  - Erythema of eyelid [Recovering/Resolving]
  - Condition aggravated [Recovering/Resolving]
